FAERS Safety Report 4636605-2 (Version None)
Quarter: 2005Q2

REPORT INFORMATION
  Report Type: 
  Country: None (occurrence: None)
  Receive Date: 20050415
  Receipt Date: 20050404
  Transmission Date: 20051028
  Serious: Yes (Hospitalization)
  Sender: FDA-Public Use
  Company Number: PHRM2005FR01223

PATIENT
  Age: 58 Year
  Sex: Female
  Weight: 43 kg

DRUGS (3)
  1. ZOMETA [Suspect]
     Indication: METASTASES TO BONE
     Dosage: 1 DF, ONCE/SINGLE
     Route: 042
     Dates: start: 20050204, end: 20050204
  2. TAXOTERE [Suspect]
     Indication: LUNG NEOPLASM MALIGNANT
     Route: 042
     Dates: start: 20041214, end: 20050204
  3. STABLON [Concomitant]
     Indication: DEPRESSION
     Dosage: 12.5 MG, TID

REACTIONS (11)
  - ASTHENIA [None]
  - C-REACTIVE PROTEIN INCREASED [None]
  - DRUG TOXICITY [None]
  - PAIN IN EXTREMITY [None]
  - PARAESTHESIA [None]
  - PERIPHERAL ISCHAEMIA [None]
  - PYREXIA [None]
  - SKIN DYSTROPHY [None]
  - SKIN FISSURES [None]
  - SKIN NECROSIS [None]
  - VOMITING [None]
